FAERS Safety Report 5372547-5 (Version None)
Quarter: 2007Q2

REPORT INFORMATION
  Report Type: 
  Country: None (occurrence: None)
  Receive Date: 20070626
  Receipt Date: 20070612
  Transmission Date: 20071010
  Serious: Yes (Other)
  Sender: FDA-Public Use
  Company Number: 6034506

PATIENT
  Age: 31 Year
  Sex: 0

DRUGS (2)
  1. SOPROL (10 MG, TABLET)  (BISOPROLOL FUMARATE) [Suspect]
     Indication: CONGESTIVE CARDIOMYOPATHY
     Dosage: 10 MG (10 MG, 1 IN 1 D), ORAL
     Route: 048
  2. NADOLOL (TABLET)  (NADOLOL) [Concomitant]

REACTIONS (3)
  - DRUG INEFFECTIVE [None]
  - SYNCOPE [None]
  - VENTRICULAR TACHYCARDIA [None]
